FAERS Safety Report 21916070 (Version 1)
Quarter: 2023Q1

REPORT INFORMATION
  Report Type: Spontaneous
  Country: US (occurrence: None)
  Receive Date: 20230125
  Receipt Date: 20230125
  Transmission Date: 20230417
  Serious: Yes (Other)
  Sender: FDA-Public Use
  Company Number: None

PATIENT
  Age: 71 Year
  Sex: Female

DRUGS (11)
  1. EPCLUSA [Suspect]
     Active Substance: SOFOSBUVIR\VELPATASVIR
     Indication: Hepatitis C
     Dosage: OTHER QUANTITY : 400-100 DF;?FREQUENCY : DAILY;?
     Route: 048
     Dates: start: 20230112, end: 20230125
  2. ALPRAZOLAM [Concomitant]
     Active Substance: ALPRAZOLAM
  3. CHOLESTYRAMINE [Concomitant]
     Active Substance: CHOLESTYRAMINE
  4. DICYCLOMINE [Concomitant]
  5. ALENDRONATE [Concomitant]
     Active Substance: ALENDRONATE SODIUM
  6. COLESTIPOL [Concomitant]
     Active Substance: COLESTIPOL
  7. LEFLUNOMIDE [Concomitant]
     Active Substance: LEFLUNOMIDE
  8. LEVOTHYROXINE [Concomitant]
     Active Substance: LEVOTHYROXINE
  9. TEMAZEPAM [Concomitant]
     Active Substance: TEMAZEPAM
  10. WELLBUTRIN SR [Concomitant]
     Active Substance: BUPROPION HYDROCHLORIDE
  11. ZYRTEC [Concomitant]
     Active Substance: CETIRIZINE HYDROCHLORIDE

REACTIONS (4)
  - Drug hypersensitivity [None]
  - Movement disorder [None]
  - Jaw clicking [None]
  - Pseudostroke [None]

NARRATIVE: CASE EVENT DATE: 20230125
